FAERS Safety Report 7334592-X (Version None)
Quarter: 2011Q1

REPORT INFORMATION
  Report Type: 
  Country: None (occurrence: None)
  Receive Date: 20110307
  Receipt Date: 20101119
  Transmission Date: 20110831
  Serious: No
  Sender: FDA-Public Use
  Company Number: A0894747A

PATIENT
  Sex: Female

DRUGS (1)
  1. ROPINIROLE HYDROCHLORIDE [Suspect]
     Indication: PARKINSON'S DISEASE
     Route: 048

REACTIONS (1)
  - ADVERSE DRUG REACTION [None]
